FAERS Safety Report 17362538 (Version 1)
Quarter: 2020Q1

REPORT INFORMATION
  Report Type: Spontaneous
  Country: US (occurrence: US)
  Receive Date: 20200202
  Receipt Date: 20200202
  Transmission Date: 20200409
  Serious: Yes (Life-Threatening, Hospitalization, Other)
  Sender: FDA-Public Use
  Company Number: None

PATIENT
  Age: 60 Year
  Sex: Female
  Weight: 79.4 kg

DRUGS (1)
  1. METHOTREXATE. [Suspect]
     Active Substance: METHOTREXATE
     Indication: PSORIASIS
     Dates: start: 20190521, end: 20191122

REACTIONS (5)
  - Anaemia [None]
  - Thrombocytopenia [None]
  - Oral pain [None]
  - Neutropenia [None]
  - Chills [None]

NARRATIVE: CASE EVENT DATE: 20191123
